FAERS Safety Report 13735548 (Version 1)
Quarter: 2017Q3

REPORT INFORMATION
  Report Type: Spontaneous
  Country: US (occurrence: US)
  Receive Date: 20170709
  Receipt Date: 20170709
  Transmission Date: 20171127
  Serious: No
  Sender: FDA-Public Use
  Company Number: None

PATIENT
  Age: 30 Year
  Sex: Female
  Weight: 38.25 kg

DRUGS (2)
  1. LEXAPRO [Suspect]
     Active Substance: ESCITALOPRAM OXALATE
     Indication: ANXIETY DISORDER
     Dosage: ?          OTHER STRENGTH:MG;QUANTITY:30 TABLET(S);?
     Route: 048
     Dates: start: 20170629, end: 20170708
  2. REMERON [Concomitant]
     Active Substance: MIRTAZAPINE

REACTIONS (8)
  - Feeling of body temperature change [None]
  - Anxiety [None]
  - Paraesthesia [None]
  - Neck pain [None]
  - Nervousness [None]
  - Incorrect dose administered [None]
  - Formication [None]
  - Panic attack [None]

NARRATIVE: CASE EVENT DATE: 20170708
